FAERS Safety Report 6394335-3 (Version None)
Quarter: 2009Q4

REPORT INFORMATION
  Report Type: 
  Country: None (occurrence: None)
  Receive Date: 20091006
  Receipt Date: 20090930
  Transmission Date: 20100525
  Serious: Yes (Hospitalization)
  Sender: FDA-Public Use
  Company Number: 2009SP028302

PATIENT
  Sex: Female

DRUGS (1)
  1. TEMOZOLOMIDE [Suspect]
     Indication: GLIOMA
     Dosage: 120 MG; PO
     Route: 048
     Dates: start: 20090817

REACTIONS (2)
  - FEBRILE NEUTROPENIA [None]
  - VIRAL INFECTION [None]
